FAERS Safety Report 6483706-2 (Version None)
Quarter: 2009Q4

REPORT INFORMATION
  Report Type: 
  Country: None (occurrence: None)
  Receive Date: 20091209
  Receipt Date: 20090526
  Transmission Date: 20100525
  Serious: No
  Sender: FDA-Public Use
  Company Number: US-AMGEN-KDL345306

PATIENT
  Sex: Female

DRUGS (5)
  1. ENBREL [Suspect]
     Indication: RHEUMATOID ARTHRITIS
     Route: 058
     Dates: start: 20090212
  2. METHOTREXATE [Concomitant]
     Dates: start: 20080821
  3. CELEBREX [Concomitant]
     Dates: start: 20080707
  4. LEVOTHYROXINE SODIUM [Concomitant]
     Dates: start: 20070301
  5. PERCOCET [Concomitant]
     Dates: start: 20080707

REACTIONS (1)
  - THROAT IRRITATION [None]
